FAERS Safety Report 5137232-3 (Version None)
Quarter: 2006Q4

REPORT INFORMATION
  Report Type: 
  Country: None (occurrence: None)
  Receive Date: 20061030
  Receipt Date: 20050921
  Transmission Date: 20070319
  Serious: No
  Sender: FDA-Public Use
  Company Number: US-GLAXOSMITHKLINE-A0575242A

PATIENT
  Sex: Male

DRUGS (8)
  1. ADVAIR HFA [Suspect]
     Indication: DRUG USE FOR UNKNOWN INDICATION
     Dosage: 1PUFF TWICE PER DAY
     Route: 055
  2. AEROBID [Suspect]
  3. COMBIVENT [Suspect]
  4. TEMAZEPAM [Concomitant]
  5. LISINOPRIL [Concomitant]
  6. PREDNISONE TAB [Concomitant]
  7. CLONAZEPAM [Concomitant]
  8. BEER [Concomitant]

REACTIONS (1)
  - BREATH ALCOHOL TEST POSITIVE [None]
